FAERS Safety Report 9007483 (Version 1)
Quarter: 2013Q1

REPORT INFORMATION
  Report Type: Spontaneous
  Country: US (occurrence: US)
  Receive Date: 20130111
  Receipt Date: 20130111
  Transmission Date: 20140127
  Serious: Yes (Hospitalization)
  Sender: FDA-Public Use
  Company Number: US-009507513-0810USA03171

PATIENT
  Sex: 0

DRUGS (3)
  1. SINGULAIR [Suspect]
     Indication: PRODUCT USED FOR UNKNOWN INDICATION
     Route: 048
  2. PROVENTIL [Suspect]
     Route: 055
  3. PROVENTIL HFA [Suspect]
     Route: 048

REACTIONS (2)
  - Pneumonia [Unknown]
  - Product quality issue [Unknown]
